FAERS Safety Report 15472669 (Version 2)
Quarter: 2018Q4

REPORT INFORMATION
  Report Type: Spontaneous
  Country: US (occurrence: US)
  Receive Date: 20181008
  Receipt Date: 20181011
  Transmission Date: 20190205
  Serious: Yes (Death)
  Sender: FDA-Public Use
  Company Number: US-ROCHE-2195752

PATIENT
  Age: 71 Year
  Sex: Male

DRUGS (1)
  1. ESBRIET [Suspect]
     Active Substance: PIRFENIDONE
     Indication: IDIOPATHIC PULMONARY FIBROSIS
     Dosage: 1 TABLET BY MOUTH 3 TIMES DAILY FOR 7 DAYS.?2  TABLET BY MOUTH 3 TIMES DAILY FOR 8-14 DAYS.?3  TABLE
     Route: 048
     Dates: start: 20180807

REACTIONS (1)
  - Death [Fatal]

NARRATIVE: CASE EVENT DATE: 20180910
